FAERS Safety Report 16827194 (Version 2)
Quarter: 2019Q4

REPORT INFORMATION
  Report Type: Spontaneous
  Country: JP (occurrence: JP)
  Receive Date: 20190919
  Receipt Date: 20191030
  Transmission Date: 20200122
  Serious: Yes (Other)
  Sender: FDA-Public Use
  Company Number: JP-ROCHE-2414328

PATIENT
  Age: 72 Year
  Sex: Male

DRUGS (7)
  1. LUCENTIS [Suspect]
     Active Substance: RANIBIZUMAB
     Dosage: UNK
     Route: 047
     Dates: start: 201303
  2. LUCENTIS [Suspect]
     Active Substance: RANIBIZUMAB
     Dosage: UNK
     Route: 047
     Dates: start: 201302
  3. LUCENTIS [Suspect]
     Active Substance: RANIBIZUMAB
     Indication: AGE-RELATED MACULAR DEGENERATION
     Route: 047
     Dates: start: 20120303
  4. LUCENTIS [Suspect]
     Active Substance: RANIBIZUMAB
     Dosage: UNK
     Route: 047
     Dates: start: 201206
  5. LUCENTIS [Suspect]
     Active Substance: RANIBIZUMAB
     Dosage: UNK
     Route: 047
     Dates: start: 201210
  6. LUCENTIS [Suspect]
     Active Substance: RANIBIZUMAB
     Dosage: UNK (BOTH EYES)
     Route: 047
     Dates: start: 201208
  7. LUCENTIS [Suspect]
     Active Substance: RANIBIZUMAB
     Dosage: UNK
     Route: 047
     Dates: start: 201212

REACTIONS (5)
  - Choroidal neovascularisation [Recovering/Resolving]
  - Cataract [Recovering/Resolving]
  - Disease progression [Unknown]
  - Tachyphylaxis [Recovering/Resolving]
  - Age-related macular degeneration [Unknown]

NARRATIVE: CASE EVENT DATE: 201304
